FAERS Safety Report 21964515 (Version 1)
Quarter: 2023Q1

REPORT INFORMATION
  Report Type: Report from Study
  Country: US (occurrence: US)
  Receive Date: 20230207
  Receipt Date: 20230207
  Transmission Date: 20230418
  Serious: Yes (Hospitalization)
  Sender: FDA-Public Use
  Company Number: US-BAUSCH-BL-2023-001906

PATIENT
  Age: 87 Year
  Sex: Female

DRUGS (3)
  1. XIFAXAN [Suspect]
     Active Substance: RIFAXIMIN
     Indication: Hepatic encephalopathy
     Route: 065
  2. XIFAXAN [Suspect]
     Active Substance: RIFAXIMIN
     Route: 065
  3. INSULIN NOS [Concomitant]
     Active Substance: INSULIN NOS
     Indication: Type 1 diabetes mellitus
     Dosage: 2 DIFFERENT INSULIN THREE TIMES DAILY

REACTIONS (5)
  - Hospitalisation [Unknown]
  - Physical disability [Unknown]
  - Mental disability [Unknown]
  - Intentional product use issue [Unknown]
  - Inability to afford medication [Unknown]
